FAERS Safety Report 24114248 (Version 4)
Quarter: 2025Q1

REPORT INFORMATION
  Report Type: Spontaneous
  Country: FR (occurrence: FR)
  Receive Date: 20240720
  Receipt Date: 20250106
  Transmission Date: 20250409
  Serious: Yes (Congenital Anomaly)
  Sender: AUROBINDO
  Company Number: FR-AFSSAPS-TS2024000829

PATIENT
  Sex: Female
  Weight: 3.405 kg

DRUGS (16)
  1. CETIRIZINE [Suspect]
     Active Substance: CETIRIZINE HYDROCHLORIDE
     Indication: Cystic fibrosis
     Dosage: 20 MILLIGRAM, ONCE A DAY
     Route: 064
     Dates: start: 20231029
  2. ESOMEPRAZOLE [Suspect]
     Active Substance: ESOMEPRAZOLE
     Indication: Cystic fibrosis
     Dosage: 20 MILLIGRAM, ONCE A DAY
     Route: 064
     Dates: start: 20231029
  3. AMBROXOL HYDROCHLORIDE [Suspect]
     Active Substance: AMBROXOL HYDROCHLORIDE
     Indication: Cystic fibrosis
     Dosage: 1 DOSAGE FORM, 3 TIMES A DAY
     Route: 064
     Dates: start: 20240516
  4. PULMOZYME [Suspect]
     Active Substance: DORNASE ALFA
     Indication: Cystic fibrosis
     Dosage: 1 DOSAGE FORM, ONCE A DAY
     Route: 064
     Dates: start: 20231029, end: 20240516
  5. PULMOZYME [Suspect]
     Active Substance: DORNASE ALFA
     Dosage: 1 DOSAGE FORM, ONCE A DAY (2500 U/2.5 ML)
     Dates: start: 20231029, end: 20240516
  6. CREON [Suspect]
     Active Substance: PANCRELIPASE AMYLASE\PANCRELIPASE LIPASE\PANCRELIPASE PROTEASE
     Indication: Cystic fibrosis
     Dosage: 15 DOSAGE FORM, ONCE A DAY
     Route: 064
     Dates: start: 20231029
  7. ELEXACAFTOR\IVACAFTOR\TEZACAFTOR [Suspect]
     Active Substance: ELEXACAFTOR\IVACAFTOR\TEZACAFTOR
     Indication: Cystic fibrosis
     Dosage: 2 DOSAGE FORM, ONCE A DAY
     Route: 064
     Dates: start: 20231029
  8. COLISTIMETHATE SODIUM [Suspect]
     Active Substance: COLISTIMETHATE SODIUM
     Indication: Cystic fibrosis
     Dosage: UNK UNK, TWO TIMES A DAY
     Route: 064
     Dates: start: 20231029
  9. SINGULAIR [Suspect]
     Active Substance: MONTELUKAST SODIUM
     Indication: Cystic fibrosis
     Route: 064
     Dates: start: 20240516
  10. INNOVAIR [Suspect]
     Active Substance: BECLOMETHASONE DIPROPIONATE\FORMOTEROL
     Indication: Cystic fibrosis
     Dosage: 2 DOSAGE FORM, TWO TIMES A DAY
     Route: 064
     Dates: start: 20231029
  11. ALBUTEROL [Suspect]
     Active Substance: ALBUTEROL
     Indication: Cystic fibrosis
     Route: 064
     Dates: start: 20231029, end: 20240510
  12. SPIRIVA RESPIMAT [Suspect]
     Active Substance: TIOTROPIUM BROMIDE
     Indication: Cystic fibrosis
     Dosage: 2 DOSAGE FORM, ONCE A DAY
     Route: 064
     Dates: start: 20231029
  13. KALYDECO [Suspect]
     Active Substance: IVACAFTOR
     Indication: Cystic fibrosis
     Dosage: 1 DOSAGE FORM, ONCE A DAY
     Route: 064
     Dates: start: 20231029
  14. KALYDECO [Suspect]
     Active Substance: IVACAFTOR
     Dosage: 150 MILLIGRAM, ONCE A DAY (ONE DOSE PER DAY)
     Route: 048
     Dates: start: 20231029
  15. PANCRELIPASE [Suspect]
     Active Substance: PANCRELIPASE
     Indication: Cystic fibrosis
     Dosage: 3 DOSAGE FORM, 3 TIMES A DAY (40000 U, TID)
     Route: 064
     Dates: start: 20231029
  16. IPRATROPIUM BROMIDE\FENOTEROL HYDROBROMIDE [Suspect]
     Active Substance: FENOTEROL HYDROBROMIDE\IPRATROPIUM BROMIDE
     Indication: Cystic fibrosis
     Dosage: 1 DOSAGE FORM, 3 TIMES A DAY
     Route: 064
     Dates: start: 20240516

REACTIONS (5)
  - Left-to-right cardiac shunt [Not Recovered/Not Resolved]
  - Amniotic fluid index increased [Recovered/Resolved]
  - Foetal macrosomia [Recovered/Resolved]
  - Maternal exposure during pregnancy [Recovered/Resolved]
  - Conjunctivitis [Not Recovered/Not Resolved]

NARRATIVE: CASE EVENT DATE: 20210301
